FAERS Safety Report 11157918 (Version 4)
Quarter: 2015Q3

REPORT INFORMATION
  Report Type: Spontaneous
  Country: FR (occurrence: None)
  Receive Date: 20150601
  Receipt Date: 20150825
  Transmission Date: 20151125
  Serious: Yes (Death, Other)
  Sender: FDA-Public Use
  Company Number: 2015FE01699

PATIENT
  Age: 67 Year
  Sex: Female
  Weight: 62 kg

DRUGS (4)
  1. LASILIX  (FUROSEMIDE) [Concomitant]
     Active Substance: FUROSEMIDE
  2. POTASSIUM (POTASSIUM) [Concomitant]
     Active Substance: POTASSIUM
  3. OLIMEL N7E (ALANINE, ARGININE, ASPARTIC ACID, CALCIUM CHLORIDE DIHYDRATE, GLUCOSE, GLUTAMIC ACID, GLYCINE, GLYCINE MAX OIL, HISTIDINE, ISOLEUCINE, LEUCINE, LYSINE ACETATE, MAGNESIUM CHLORIDE HEXAHYDRATE, METHIONINE, OLEA EUROPAEA OIL, PHENYLALANINE, POTASSIUM CHLORIDE, PROLINE, SERINE, SODIUM ACETATE TRIHYDRATE, SODIUM GLYCEROPHOSPHATE, THREONINE, TRYPTOPHAN, L- TYROSINE, VALINE) [Concomitant]
  4. PICOPREP [Suspect]
     Active Substance: CITRIC ACID MONOHYDRATE\MAGNESIUM OXIDE\SODIUM PICOSULFATE
     Indication: COLONOSCOPY

REACTIONS (7)
  - Diarrhoea [None]
  - Pleural effusion [None]
  - Fatigue [None]
  - Vomiting [None]
  - Off label use [None]
  - Arrhythmia [None]
  - Incorrect drug administration rate [None]

NARRATIVE: CASE EVENT DATE: 20150417
